FAERS Safety Report 5165525-2 (Version None)
Quarter: 2006Q4

REPORT INFORMATION
  Report Type: 
  Country: None (occurrence: None)
  Receive Date: 20061124
  Receipt Date: 20061109
  Transmission Date: 20070319
  Serious: Yes (Other)
  Sender: FDA-Public Use
  Company Number: 2006140003

PATIENT
  Sex: Male

DRUGS (5)
  1. NORVASC [Suspect]
     Dosage: SEE IMAGE
     Route: 048
  2. NORVASC [Suspect]
     Dosage: SEE IMAGE
     Route: 048
     Dates: start: 20061101
  3. CALCIUM (CALCIUM) [Concomitant]
  4. COENZYME Q10 [Concomitant]
  5. VERAPAMIL HYDROCHLORIDE [Concomitant]

REACTIONS (4)
  - BLOOD PRESSURE DECREASED [None]
  - GASTRIC CANCER [None]
  - NAUSEA [None]
  - WEIGHT DECREASED [None]
